FAERS Safety Report 21966346 (Version 3)
Quarter: 2023Q2

REPORT INFORMATION
  Report Type: Spontaneous
  Country: US (occurrence: US)
  Receive Date: 20230208
  Receipt Date: 20230427
  Transmission Date: 20230721
  Serious: No
  Sender: FDA-Public Use
  Company Number: US-BRISTOL-MYERS SQUIBB COMPANY-2023-017857

PATIENT
  Age: 59 Year
  Sex: Female

DRUGS (3)
  1. SPRYCEL [Suspect]
     Active Substance: DASATINIB
     Indication: Neoplasm malignant
     Route: 048
     Dates: start: 202105
  2. SPRYCEL [Suspect]
     Active Substance: DASATINIB
     Route: 048
     Dates: start: 202001
  3. JARDIANCE [Suspect]
     Active Substance: EMPAGLIFLOZIN
     Indication: Product used for unknown indication
     Dates: start: 202303

REACTIONS (6)
  - Alopecia [Unknown]
  - Off label use [Unknown]
  - Erythema [Unknown]
  - Feeling hot [Unknown]
  - Joint swelling [Unknown]
  - Arthralgia [Unknown]
